FAERS Safety Report 12891671 (Version 4)
Quarter: 2017Q1

REPORT INFORMATION
  Report Type: Report from Study
  Country: US (occurrence: US)
  Receive Date: 20161028
  Receipt Date: 20170125
  Transmission Date: 20170428
  Serious: Yes (Other)
  Sender: FDA-Public Use
  Company Number: US-ROCHE-1844800

PATIENT
  Age: 45 Year
  Sex: Male
  Weight: 60 kg

DRUGS (22)
  1. VISMODEGIB [Suspect]
     Active Substance: VISMODEGIB
     Route: 048
     Dates: start: 20141110, end: 20150416
  2. PACLITAXEL. [Suspect]
     Active Substance: PACLITAXEL
     Indication: BASAL CELL CARCINOMA
     Route: 042
     Dates: start: 20160202, end: 20160622
  3. TYLENOL [Concomitant]
     Active Substance: ACETAMINOPHEN
     Indication: MUSCULOSKELETAL PAIN
     Route: 048
     Dates: end: 20161028
  4. FENTANYL. [Concomitant]
     Active Substance: FENTANYL
     Indication: MUSCULOSKELETAL PAIN
     Route: 050
     Dates: start: 20140117, end: 20161028
  5. VISMODEGIB [Suspect]
     Active Substance: VISMODEGIB
     Route: 048
     Dates: start: 20141124, end: 20150427
  6. CYMBALTA [Concomitant]
     Active Substance: DULOXETINE HYDROCHLORIDE
     Indication: MUSCULOSKELETAL PAIN
     Route: 048
     Dates: start: 20140211, end: 20161028
  7. NORCO [Concomitant]
     Active Substance: ACETAMINOPHEN\HYDROCODONE BITARTRATE
     Indication: MUSCULOSKELETAL PAIN
     Route: 048
     Dates: end: 20161028
  8. FENTANYL. [Concomitant]
     Active Substance: FENTANYL
     Indication: NEURALGIA
  9. BUPARLISIB [Suspect]
     Active Substance: BUPARLISIB HYDROCHLORIDE
     Indication: BASAL CELL CARCINOMA
     Route: 048
     Dates: start: 20150730, end: 20150811
  10. NEURONTIN [Concomitant]
     Active Substance: GABAPENTIN
     Indication: MUSCULOSKELETAL PAIN
     Route: 048
     Dates: start: 20140505, end: 20161028
  11. NEURONTIN [Concomitant]
     Active Substance: GABAPENTIN
     Indication: NEURALGIA
  12. SONIDEGIB [Suspect]
     Active Substance: SONIDEGIB
     Indication: BASAL CELL CARCINOMA
     Route: 048
     Dates: start: 20150730, end: 20150811
  13. LAMBROLIZUMAB [Suspect]
     Active Substance: LAMBROLIZUMAB
     Indication: BASAL CELL CARCINOMA
     Route: 042
     Dates: start: 20151006, end: 20151208
  14. CYMBALTA [Concomitant]
     Active Substance: DULOXETINE HYDROCHLORIDE
     Indication: NEURALGIA
     Route: 048
     Dates: start: 20140211, end: 20161028
  15. IBUPROFEN. [Concomitant]
     Active Substance: IBUPROFEN
     Indication: MUSCULOSKELETAL PAIN
     Route: 048
     Dates: end: 20161028
  16. ALEVE [Concomitant]
     Active Substance: NAPROXEN SODIUM
     Indication: NECK PAIN
  17. MARINOL [Concomitant]
     Active Substance: DRONABINOL
     Indication: WEIGHT DECREASED
     Route: 048
     Dates: start: 20140702, end: 20161028
  18. VISMODEGIB [Suspect]
     Active Substance: VISMODEGIB
     Indication: BASAL CELL CARCINOMA
     Route: 048
     Dates: start: 20131116, end: 20140215
  19. CARBOPLATIN. [Suspect]
     Active Substance: CARBOPLATIN
     Indication: BASAL CELL CARCINOMA
     Route: 042
     Dates: start: 20150428, end: 20150617
  20. ALEVE [Concomitant]
     Active Substance: NAPROXEN SODIUM
     Indication: MUSCULOSKELETAL PAIN
     Route: 048
     Dates: end: 20161028
  21. LIDOCAINE. [Concomitant]
     Active Substance: LIDOCAINE
     Indication: MUSCULOSKELETAL PAIN
     Route: 050
     Dates: start: 20141217, end: 20161028
  22. XANAX [Concomitant]
     Active Substance: ALPRAZOLAM
     Indication: ANXIETY
     Route: 048
     Dates: end: 20161028

REACTIONS (1)
  - Depression [Not Recovered/Not Resolved]

NARRATIVE: CASE EVENT DATE: 20150730
